FAERS Safety Report 21082806 (Version 2)
Quarter: 2022Q3

REPORT INFORMATION
  Report Type: Report from Study
  Country: EG (occurrence: EG)
  Receive Date: 20220714
  Receipt Date: 20220726
  Transmission Date: 20221027
  Serious: Yes (Other)
  Sender: FDA-Public Use
  Company Number: EG-JNJFOC-20220715064

PATIENT
  Age: 30 Year
  Sex: Female

DRUGS (4)
  1. ESKETAMINE [Suspect]
     Active Substance: ESKETAMINE
     Indication: Product used for unknown indication
     Dosage: FIRST ONE 3 PUFFS
     Dates: start: 20220706
  2. PAROXETINE [Concomitant]
     Active Substance: PAROXETINE
  3. CARIPRAZINE [Concomitant]
     Active Substance: CARIPRAZINE
  4. CLOZAPINE [Concomitant]
     Active Substance: CLOZAPINE
     Dosage: TWO TABLETS AT NIGHT

REACTIONS (2)
  - Suicidal ideation [Recovered/Resolved]
  - Product dose omission issue [Unknown]

NARRATIVE: CASE EVENT DATE: 20220701
